FAERS Safety Report 9251803 (Version 1)
Quarter: 2013Q1

REPORT INFORMATION
  Report Type: Spontaneous
  Country: US (occurrence: None)
  Receive Date: 20130305
  Receipt Date: 20130305
  Transmission Date: 20140127
  Serious: Yes (Hospitalization, Other)
  Sender: FDA-Public Use
  Company Number: 163-21880-12082826

PATIENT
  Age: 57 Year
  Sex: Male
  Weight: 103.87 kg

DRUGS (6)
  1. REVLIMID [Suspect]
     Indication: CHRONIC LYMPHOCYTIC LEUKAEMIA
     Dosage: 21 IN 28 D
     Route: 048
     Dates: start: 20120411, end: 201204
  2. ALLOPURINOL [Concomitant]
  3. AMITRIPTYLINE (AMITRIPTYLINE) (50 MILLIGRAM, TABLETS) [Concomitant]
  4. VALTREX (VALACICLOVIR HYDROCHLORIDE) (500 MILLIGRAM, TABLETS) [Concomitant]
  5. HALOPERIDOL (HALOPERIDOL) (HALOPERIDOL) [Concomitant]
  6. WARFARIN (WARFARIN) (10 MILLIGRAM, TABLETS) [Concomitant]

REACTIONS (5)
  - Abdominal discomfort [None]
  - Renal failure acute [None]
  - Tumour lysis syndrome [None]
  - Febrile neutropenia [None]
  - Bacteraemia [None]
